FAERS Safety Report 9213147 (Version 1)
Quarter: 2013Q2

REPORT INFORMATION
  Report Type: Spontaneous
  Country: US (occurrence: US)
  Receive Date: 20130405
  Receipt Date: 20130405
  Transmission Date: 20140414
  Serious: Yes (Other)
  Sender: FDA-Public Use
  Company Number: US-PFIZER INC-2013108226

PATIENT
  Age: 55 Year
  Sex: Female
  Weight: 85.3 kg

DRUGS (2)
  1. NEURONTIN [Suspect]
     Indication: BACK PAIN
     Dosage: 300 MG, 2X/DAY
     Dates: start: 2003
  2. NEURONTIN [Suspect]
     Indication: NECK PAIN

REACTIONS (1)
  - Diabetes mellitus [Not Recovered/Not Resolved]
